FAERS Safety Report 9799085 (Version 2)
Quarter: 2014Q1

REPORT INFORMATION
  Report Type: Spontaneous
  Country: US (occurrence: US)
  Receive Date: 20140106
  Receipt Date: 20140106
  Transmission Date: 20141002
  Serious: No
  Sender: FDA-Public Use
  Company Number: US-GILEAD-2010-0033629

PATIENT
  Age: 44 Year
  Sex: Female
  Weight: 78.47 kg

DRUGS (8)
  1. LETAIRIS [Suspect]
     Indication: PULMONARY ARTERIAL HYPERTENSION
     Route: 048
     Dates: start: 20100804, end: 20101112
  2. RALTEGRAVIR [Concomitant]
  3. DARUNAVIR [Concomitant]
  4. RITONAVIR [Concomitant]
  5. FLUTICASONE [Concomitant]
  6. CALCIUM [Concomitant]
  7. MULTIVITAMIN [Concomitant]
  8. VITAMIN B-12 [Concomitant]

REACTIONS (2)
  - Sinus headache [Not Recovered/Not Resolved]
  - Sinus headache [Not Recovered/Not Resolved]
